FAERS Safety Report 4998998-6 (Version None)
Quarter: 2006Q2

REPORT INFORMATION
  Report Type: 
  Country: None (occurrence: None)
  Receive Date: 20060509
  Receipt Date: 20060428
  Transmission Date: 20061013
  Serious: Yes (Other)
  Sender: FDA-Public Use
  Company Number: 8016728

PATIENT
  Age: 18 Year

DRUGS (1)
  1. KEPPRA [Suspect]
     Dosage: PO
     Route: 048

REACTIONS (2)
  - JAUNDICE [None]
  - LIVER DISORDER [None]
